FAERS Safety Report 6712473-X (Version None)
Quarter: 2010Q2

REPORT INFORMATION
  Report Type: 
  Country: None (occurrence: None)
  Receive Date: 20100506
  Receipt Date: 20100427
  Transmission Date: 20101027
  Serious: No
  Sender: FDA-Public Use
  Company Number: US-BIOGENIDEC-2010BI014001

PATIENT
  Age: 29 Year
  Sex: Female

DRUGS (2)
  1. AVONEX [Suspect]
     Indication: MULTIPLE SCLEROSIS
     Route: 030
     Dates: start: 20100415, end: 20100415
  2. AVONEX [Suspect]
     Route: 030
     Dates: start: 20100422

REACTIONS (3)
  - CRYING [None]
  - FAECAL INCONTINENCE [None]
  - URINARY INCONTINENCE [None]
